FAERS Safety Report 10812156 (Version 3)
Quarter: 2015Q1

REPORT INFORMATION
  Report Type: Spontaneous
  Country: JP (occurrence: JP)
  Receive Date: 20150218
  Receipt Date: 20150322
  Transmission Date: 20150721
  Serious: Yes (Hospitalization, Other)
  Sender: FDA-Public Use
  Company Number: JP-AMGEN-JPNSP2015015005

PATIENT
  Age: 64 Year
  Sex: Male
  Weight: 90.7 kg

DRUGS (10)
  1. KINDAVATE [Concomitant]
     Dosage: UNK
     Route: 062
  2. LYRICA [Concomitant]
     Active Substance: PREGABALIN
     Dosage: 75 MG, BID
     Route: 048
  3. GENTACIN [Concomitant]
     Active Substance: GENTAMICIN SULFATE
     Dosage: UNK
     Route: 062
  4. VECTIBIX [Suspect]
     Active Substance: PANITUMUMAB
     Indication: COLON CANCER
     Dosage: 500 MG, Q3WEEKS
     Route: 041
     Dates: start: 201212, end: 201408
  5. REVOLADE [Concomitant]
     Active Substance: ELTROMBOPAG
     Dosage: UNK
     Route: 048
  6. PROMAC                             /01312301/ [Concomitant]
     Active Substance: NITROFURANTOIN
     Indication: DYSGEUSIA
     Dosage: 0.5 G, BID
     Route: 048
  7. LYRICA [Concomitant]
     Active Substance: PREGABALIN
     Indication: NEUROPATHY PERIPHERAL
     Dosage: UNK
     Route: 048
  8. VECTIBIX [Suspect]
     Active Substance: PANITUMUMAB
     Dosage: 500 MG, Q3WEEKS
     Route: 041
     Dates: start: 20141114, end: 20141114
  9. PYDOXAL [Concomitant]
     Active Substance: PYRIDOXAL
     Indication: NEUROPATHY PERIPHERAL
     Dosage: 10 MG, BID
     Route: 048
  10. GOSHAJINKIGAN [Concomitant]
     Active Substance: HERBALS
     Indication: NEUROPATHY PERIPHERAL
     Dosage: 2.5 G, BID
     Route: 048

REACTIONS (1)
  - Immune thrombocytopenic purpura [Not Recovered/Not Resolved]

NARRATIVE: CASE EVENT DATE: 201408
